FAERS Safety Report 8904132 (Version 1)
Quarter: 2012Q4

REPORT INFORMATION
  Report Type: 
  Country: US (occurrence: US)
  Receive Date: 20121112
  Receipt Date: 20121112
  Transmission Date: 20130627
  Serious: No
  Sender: FDA-Public Use
  Company Number: US-COVIDIEN/TYCO HEALTHCARE/MALLINCKRODT-T201203527

PATIENT
  Age: 46 Year
  Sex: Female

DRUGS (7)
  1. FENTANYL TRANSDERMAL SYSTEM [Suspect]
     Indication: BACK PAIN
     Dosage: Two 100 ug/hr patches, Q 72 hrs
     Dates: start: 201207
  2. FENTANYL TRANSDERMAL SYSTEM [Suspect]
     Indication: SCIATICA
  3. CLONAZEPAM [Concomitant]
     Indication: ANXIETY
     Dosage: UNK
  4. FLUOXETINE [Concomitant]
     Indication: DEPRESSION
     Dosage: 40 mg, qd
  5. ABILIFY [Concomitant]
     Indication: DEPRESSION
     Dosage: 15 mg, qd
  6. COUMADIN                           /00014802/ [Concomitant]
     Indication: PROPHYLAXIS
     Dosage: UNK
  7. OXYCONTIN [Concomitant]
     Indication: PAIN
     Dosage: 80 mg, Q 6 hrs
     Dates: end: 201207

REACTIONS (2)
  - Drug screen negative [Not Recovered/Not Resolved]
  - Application site erythema [Not Recovered/Not Resolved]
